FAERS Safety Report 8429691-5 (Version None)
Quarter: 2012Q2

REPORT INFORMATION
  Report Type: 
  Country: None (occurrence: None)
  Receive Date: 20120604
  Receipt Date: 20120521
  Transmission Date: 20120825
  Serious: Yes (Other)
  Sender: FDA-Public Use
  Company Number: 2011MA002873

PATIENT
  Sex: Male

DRUGS (1)
  1. METOCLOPRAMIDE [Suspect]
     Indication: PRODUCT USED FOR UNKNOWN INDICATION
     Dosage: 5 MG/ML;0.3 ML QID;PO
     Route: 048
     Dates: start: 20071205, end: 20080408

REACTIONS (8)
  - DYSTONIA [None]
  - TARDIVE DYSKINESIA [None]
  - AKATHISIA [None]
  - ECONOMIC PROBLEM [None]
  - DYSKINESIA [None]
  - TREMOR [None]
  - EXTRAPYRAMIDAL DISORDER [None]
  - EMOTIONAL DISORDER [None]
